FAERS Safety Report 24906147 (Version 1)
Quarter: 2025Q1

REPORT INFORMATION
  Report Type: Spontaneous
  Country: US (occurrence: None)
  Receive Date: 20250129
  Receipt Date: 20250129
  Transmission Date: 20250409
  Serious: Yes (Hospitalization)
  Sender: FDA-CTU
  Company Number: None

PATIENT

DRUGS (1)
  1. GOSERELIN [Suspect]
     Active Substance: GOSERELIN

REACTIONS (2)
  - Pneumoperitoneum [None]
  - Small intestinal perforation [None]

NARRATIVE: CASE EVENT DATE: 20241227
